FAERS Safety Report 17773858 (Version 2)
Quarter: 2020Q3

REPORT INFORMATION
  Report Type: Report from Study
  Country: None (occurrence: US)
  Receive Date: 20200513
  Receipt Date: 20200721
  Transmission Date: 20201102
  Serious: Yes (Hospitalization)
  Sender: FDA-Public Use
  Company Number: US-ABBVIE-20K-163-3370249-00

PATIENT
  Sex: Male

DRUGS (1)
  1. HUMIRA [Suspect]
     Active Substance: ADALIMUMAB
     Indication: COLITIS ULCERATIVE
     Dosage: CITRATE FREE
     Route: 058

REACTIONS (6)
  - Hereditary haemorrhagic telangiectasia [Not Recovered/Not Resolved]
  - Skin lesion [Not Recovered/Not Resolved]
  - Anaemia [Not Recovered/Not Resolved]
  - Epistaxis [Not Recovered/Not Resolved]
  - Haemorrhage [Unknown]
  - Mineral supplementation [Not Recovered/Not Resolved]

NARRATIVE: CASE EVENT DATE: 2018
